FAERS Safety Report 17623179 (Version 1)
Quarter: 2020Q2

REPORT INFORMATION
  Report Type: Spontaneous
  Country: US (occurrence: US)
  Receive Date: 20200403
  Receipt Date: 20200403
  Transmission Date: 20200713
  Serious: No
  Sender: FDA-Public Use
  Company Number: US-JNJFOC-20200403078

PATIENT
  Sex: Female

DRUGS (1)
  1. STELARA [Suspect]
     Active Substance: USTEKINUMAB
     Indication: CROHN^S DISEASE
     Route: 058
     Dates: start: 201908, end: 20200226

REACTIONS (4)
  - Pruritus [Unknown]
  - Chest discomfort [Unknown]
  - Lip swelling [Unknown]
  - Rash [Unknown]

NARRATIVE: CASE EVENT DATE: 2019
